FAERS Safety Report 6111179-8 (Version None)
Quarter: 2009Q1

REPORT INFORMATION
  Report Type: 
  Country: None (occurrence: None)
  Receive Date: 20090309
  Receipt Date: 20090304
  Transmission Date: 20090719
  Serious: Yes (Death)
  Sender: FDA-Public Use
  Company Number: 2007SP017687

PATIENT
  Age: 59 Year
  Sex: Male
  Weight: 60 kg

DRUGS (18)
  1. TEMODAL [Suspect]
     Dosage: 75 MG/M2;QD;PO, 150 MG/M2;QD;PO, 200 MG/M2;QD;PO, 200 MG/M2;QD;PO, 150 MG/M2;QD;PO, 150 MG/M2;QD;PO
     Route: 048
     Dates: start: 20061122, end: 20061201
  2. TEMODAL [Suspect]
     Dosage: 75 MG/M2;QD;PO, 150 MG/M2;QD;PO, 200 MG/M2;QD;PO, 200 MG/M2;QD;PO, 150 MG/M2;QD;PO, 150 MG/M2;QD;PO
     Route: 048
     Dates: start: 20070128, end: 20070201
  3. TEMODAL [Suspect]
     Dosage: 75 MG/M2;QD;PO, 150 MG/M2;QD;PO, 200 MG/M2;QD;PO, 200 MG/M2;QD;PO, 150 MG/M2;QD;PO, 150 MG/M2;QD;PO
     Route: 048
     Dates: start: 20070225, end: 20070301
  4. TEMODAL [Suspect]
     Dosage: 75 MG/M2;QD;PO, 150 MG/M2;QD;PO, 200 MG/M2;QD;PO, 200 MG/M2;QD;PO, 150 MG/M2;QD;PO, 150 MG/M2;QD;PO
     Route: 048
     Dates: start: 20070325, end: 20070329
  5. TEMODAL [Suspect]
     Dosage: 75 MG/M2;QD;PO, 150 MG/M2;QD;PO, 200 MG/M2;QD;PO, 200 MG/M2;QD;PO, 150 MG/M2;QD;PO, 150 MG/M2;QD;PO
     Route: 048
     Dates: start: 20070507, end: 20070511
  6. TEMODAL [Suspect]
     Dosage: 75 MG/M2;QD;PO, 150 MG/M2;QD;PO, 200 MG/M2;QD;PO, 200 MG/M2;QD;PO, 150 MG/M2;QD;PO, 150 MG/M2;QD;PO
     Route: 048
     Dates: start: 20070604, end: 20070608
  7. BAKTAR [Concomitant]
  8. RINDERON [Concomitant]
  9. TAKEPRON [Concomitant]
  10. NASEA-OD [Concomitant]
  11. GASTER D [Concomitant]
  12. GASMOTIN [Concomitant]
  13. BIOFERMIN R [Concomitant]
  14. MAGNESIUM OXIDE [Concomitant]
  15. PHENOBARBITAL TAB [Concomitant]
  16. OMEPRAL [Concomitant]
  17. PROHEPARUM [Concomitant]
  18. MARZULENE [Concomitant]

REACTIONS (2)
  - NEUTROPHIL COUNT DECREASED [None]
  - PNEUMONIA [None]
